FAERS Safety Report 20808596 (Version 1)
Quarter: 2022Q2

REPORT INFORMATION
  Report Type: Spontaneous
  Country: US (occurrence: None)
  Receive Date: 20220509
  Receipt Date: 20220509
  Transmission Date: 20220721
  Serious: Yes (Other)
  Sender: FDA-Public Use
  Company Number: None

PATIENT
  Age: 27 Year
  Sex: Male
  Weight: 90 kg

DRUGS (7)
  1. SERTRALINE [Suspect]
     Active Substance: SERTRALINE HYDROCHLORIDE
     Indication: Depression
  2. SERTRALINE [Suspect]
     Active Substance: SERTRALINE HYDROCHLORIDE
     Indication: Anxiety
  3. GABAPENTIN [Concomitant]
     Active Substance: GABAPENTIN
  4. MAGNESIUM [Concomitant]
     Active Substance: MAGNESIUM
  5. ZINC [Concomitant]
     Active Substance: ZINC
  6. VITAMINS [Concomitant]
     Active Substance: VITAMINS
  7. VITAMIN D [Concomitant]
     Active Substance: VITAMIN D NOS

REACTIONS (2)
  - Sexual dysfunction [None]
  - Product label issue [None]

NARRATIVE: CASE EVENT DATE: 20211130
